FAERS Safety Report 5237821-1 (Version None)
Quarter: 2007Q1

REPORT INFORMATION
  Report Type: 
  Country: None (occurrence: None)
  Receive Date: 20070214
  Receipt Date: 20070205
  Transmission Date: 20070707
  Serious: Yes (Other)
  Sender: FDA-Public Use
  Company Number: US-ELI_LILLY_AND_COMPANY-US200609006132

PATIENT
  Age: 74 Year
  Sex: Female

DRUGS (5)
  1. FORTEO [Suspect]
     Indication: OSTEOPOROSIS
     Dosage: UNK, UNK
     Dates: start: 20060601
  2. CITRACAL + D [Concomitant]
  3. PATANOL [Concomitant]
  4. GLUCOSAMINE W/CHONDROITIN [Concomitant]
  5. CENTRUM SILVER [Concomitant]

REACTIONS (3)
  - METRORRHAGIA [None]
  - UTERINE CANCER [None]
  - UTERINE LEIOMYOMA [None]
